FAERS Safety Report 18650917 (Version 1)
Quarter: 2020Q4

REPORT INFORMATION
  Report Type: Spontaneous
  Country: US (occurrence: US)
  Receive Date: 20201222
  Receipt Date: 20201222
  Transmission Date: 20210114
  Serious: No
  Sender: FDA-Public Use
  Company Number: US-TEVA-2020-US-1857575

PATIENT
  Sex: Female

DRUGS (2)
  1. NEFAZODONE [Suspect]
     Active Substance: NEFAZODONE
     Route: 065
     Dates: start: 2000
  2. NEFAZODONE [Suspect]
     Active Substance: NEFAZODONE
     Route: 065
     Dates: start: 2000

REACTIONS (1)
  - Withdrawal syndrome [Unknown]
